FAERS Safety Report 15234744 (Version 1)
Quarter: 2018Q3

REPORT INFORMATION
  Report Type: Spontaneous
  Country: GB (occurrence: GB)
  Receive Date: 20180803
  Receipt Date: 20180803
  Transmission Date: 20181010
  Serious: Yes (Hospitalization)
  Sender: FDA-Public Use
  Company Number: GB-TEVA-2018-GB-933586

PATIENT
  Age: 21 Year
  Sex: Female
  Weight: 56 kg

DRUGS (7)
  1. VENTOLIN [Concomitant]
     Active Substance: ALBUTEROL SULFATE
     Route: 055
     Dates: start: 20180625, end: 20180702
  2. METRONIDAZOLE. [Concomitant]
     Active Substance: METRONIDAZOLE
     Dosage: 2 DOSAGE FORMS DAILY;
     Route: 065
     Dates: start: 20180423, end: 20180430
  3. LYMECYCLINE [Concomitant]
     Active Substance: LYMECYCLINE
     Dosage: 1 DOSAGE FORMS DAILY;
     Route: 065
     Dates: start: 20171011, end: 20180423
  4. AMOXICILLIN. [Suspect]
     Active Substance: AMOXICILLIN
     Route: 065
     Dates: start: 20180620
  5. DUAC [Concomitant]
     Active Substance: BENZOYL PEROXIDE\CLINDAMYCIN PHOSPHATE
     Dosage: 1 DOSAGE FORMS DAILY; AT NIGHT.
     Route: 065
     Dates: start: 20171011
  6. SERTRALINE [Concomitant]
     Active Substance: SERTRALINE HYDROCHLORIDE
     Dosage: USE AS DIRECTED
     Route: 065
     Dates: start: 20180409, end: 20180509
  7. DOXYCYCLINE. [Concomitant]
     Active Substance: DOXYCYCLINE
     Dosage: TWO NOW THEN ONE DAILY
     Route: 065
     Dates: start: 20180518, end: 20180523

REACTIONS (3)
  - Urticaria [Recovered/Resolved]
  - Wheezing [Recovered/Resolved]
  - Vomiting [Recovered/Resolved]

NARRATIVE: CASE EVENT DATE: 20180629
